FAERS Safety Report 8986485 (Version 1)
Quarter: 2012Q4

REPORT INFORMATION
  Report Type: 
  Country: GB (occurrence: GB)
  Receive Date: 20121227
  Receipt Date: 20121227
  Transmission Date: 20130627
  Serious: Yes (Other)
  Sender: FDA-Public Use
  Company Number: GB-TEVA-376761ISR

PATIENT
  Age: 39 Year
  Sex: Female
  Weight: 96.61 kg

DRUGS (4)
  1. METOCLOPRAMIDE [Suspect]
     Indication: NAUSEA
     Dosage: 10mg, as needed (have taken about 30 tablets in total and had 1 IV)
     Route: 048
     Dates: start: 20111205, end: 20121015
  2. METOCLOPRAMIDE [Suspect]
     Indication: ENDOMETRIOSIS
     Route: 042
     Dates: start: 201112, end: 201112
  3. OESTROGEN [Concomitant]
     Dates: start: 201210
  4. PROGESTERONE [Concomitant]
     Dosage: 7 days/month
     Dates: start: 201210

REACTIONS (6)
  - Tardive dyskinesia [Not Recovered/Not Resolved]
  - Tremor [Not Recovered/Not Resolved]
  - Hypoaesthesia [Not Recovered/Not Resolved]
  - Paraesthesia [Not Recovered/Not Resolved]
  - Feeling abnormal [Not Recovered/Not Resolved]
  - Discomfort [Not Recovered/Not Resolved]
